FAERS Safety Report 23659492 (Version 1)
Quarter: 2024Q1

REPORT INFORMATION
  Report Type: Spontaneous
  Country: RU (occurrence: RU)
  Receive Date: 20240321
  Receipt Date: 20240321
  Transmission Date: 20240410
  Serious: Yes (Other)
  Sender: FDA-Public Use
  Company Number: RU-ABBVIE-5687216

PATIENT
  Sex: Female

DRUGS (3)
  1. KALETRA [Suspect]
     Active Substance: LOPINAVIR\RITONAVIR
     Indication: HIV infection
     Dosage: DAILY: THE 1ST INTAKE - 2 TABLETS, THE 2ND INTAKE - 3 TABLETS.?FORM STRENGTH: 125 MILLIGRAM
     Route: 048
     Dates: start: 20221207, end: 20240216
  2. LAMIVUDINE [Concomitant]
     Active Substance: LAMIVUDINE
     Indication: Product used for unknown indication
     Dosage: FORM STRENGTH: 125 MILLIGRAM
     Route: 048
  3. PHOSPHAZIDE [Concomitant]
     Active Substance: PHOSPHAZIDE
     Indication: Product used for unknown indication
     Route: 048

REACTIONS (1)
  - Dyslipidaemia [Recovering/Resolving]
